FAERS Safety Report 9549262 (Version 1)
Quarter: 2013Q2

REPORT INFORMATION
  Report Type: Spontaneous
  Country: US (occurrence: None)
  Receive Date: 20130627
  Receipt Date: 20130627
  Transmission Date: 20140414
  Serious: No
  Sender: FDA-Public Use
  Company Number: 1000045401

PATIENT
  Age: 72 Year
  Sex: Female

DRUGS (5)
  1. LINZESS [Suspect]
     Indication: IRRITABLE BOWEL SYNDROME
  2. CRESTOR (ROSUVASTATIN CALCIUM) (ROSUVASTATIN CALCIUM) [Concomitant]
  3. BENICAR (OLMESARTAN MEDOXOMIL) (OLMESARTAN MEDOXOMIL) [Concomitant]
  4. HYDROCODONE (HYDROCODONE) (HYDROCODONE) [Concomitant]
  5. LEXAPRO (ESCITALOPRAM OXALATE) (ESCITALOPRAM OXALATE) [Concomitant]

REACTIONS (4)
  - Drug ineffective [None]
  - Abdominal distension [None]
  - Flatulence [None]
  - Abdominal pain upper [None]
